FAERS Safety Report 9181104 (Version 1)
Quarter: 2013Q1

REPORT INFORMATION
  Report Type: Spontaneous
  Country: US (occurrence: None)
  Receive Date: 20120621
  Receipt Date: 20120621
  Transmission Date: 20140127
  Serious: Yes (Other)
  Sender: FDA-Public Use
  Company Number: 034340

PATIENT
  Sex: Female

DRUGS (1)
  1. CIMZIA [Suspect]
     Indication: CROHN^S DISEASE
     Dosage: DR IS HOLDING DRUG UNTIL FURTHER NOTICE
     Route: 058

REACTIONS (3)
  - Crohn^s disease [None]
  - Pyrexia [None]
  - Drug ineffective [None]
